FAERS Safety Report 8292960-6 (Version None)
Quarter: 2012Q2

REPORT INFORMATION
  Report Type: 
  Country: None (occurrence: None)
  Receive Date: 20120417
  Receipt Date: 20110816
  Transmission Date: 20120825
  Serious: No
  Sender: FDA-Public Use
  Company Number: US-ASTRAZENECA-2011SE49029

PATIENT
  Sex: Female

DRUGS (3)
  1. PAROXETINE HCL [Concomitant]
  2. LISINOPRIL [Concomitant]
  3. NEXIUM [Suspect]
     Route: 048

REACTIONS (1)
  - MENTAL IMPAIRMENT [None]
